FAERS Safety Report 7526368-5 (Version None)
Quarter: 2011Q2

REPORT INFORMATION
  Report Type: 
  Country: None (occurrence: None)
  Receive Date: 20110603
  Receipt Date: 20110603
  Transmission Date: 20111010
  Serious: Yes (Life-Threatening, Hospitalization)
  Sender: FDA-Public Use
  Company Number: None

PATIENT
  Sex: Female
  Weight: 68.0396 kg

DRUGS (1)
  1. LYSTEDA [Suspect]
     Indication: MENORRHAGIA
     Dosage: 650 MG 2 TABLETS 3X/DAY PO
     Route: 048

REACTIONS (2)
  - UNDERDOSE [None]
  - PULMONARY EMBOLISM [None]
